FAERS Safety Report 12113584 (Version 1)
Quarter: 2016Q1

REPORT INFORMATION
  Report Type: Spontaneous
  Country: DE (occurrence: DE)
  Receive Date: 20160225
  Receipt Date: 20160225
  Transmission Date: 20160526
  Serious: Yes (Disabling)
  Sender: FDA-Public Use
  Company Number: DE-SUN PHARMACEUTICAL INDUSTRIES LTD-2016RR-111752

PATIENT

DRUGS (15)
  1. PRAMIPEXOL HEUMANN [Concomitant]
     Dosage: UNK
     Route: 065
     Dates: start: 20160121
  2. GABAPENTIN AUROBINDO 300 MG [Concomitant]
     Indication: PRODUCT USED FOR UNKNOWN INDICATION
     Dosage: UNK
     Route: 065
     Dates: start: 20151009
  3. METFORMIN LICH 1000 MG [Concomitant]
     Indication: PRODUCT USED FOR UNKNOWN INDICATION
     Dosage: UNK
     Route: 065
     Dates: start: 20151221
  4. TAMSULOSIN BASICS 0,4 MG HARTKAPSEL, RETARDIERT [Suspect]
     Active Substance: TAMSULOSIN
     Dosage: UNK
     Route: 065
     Dates: start: 20160114
  5. JANUVIA [Concomitant]
     Active Substance: SITAGLIPTIN PHOSPHATE
     Indication: PRODUCT USED FOR UNKNOWN INDICATION
     Dosage: UNK
     Route: 065
     Dates: start: 20151016
  6. PRAMIPEXOL HEUMANN 0.35 MG [Concomitant]
     Indication: PRODUCT USED FOR UNKNOWN INDICATION
     Dosage: UNK
     Route: 065
     Dates: start: 20151204
  7. PRAMIPEXOL HEUMANN [Concomitant]
     Dosage: UNK
     Dates: start: 20151204
  8. LANTUS 100E/ML SOLOSTAR FS [Concomitant]
     Dosage: UNK
     Route: 065
     Dates: start: 20160114
  9. RAMIPRIL ACTAV COMP 5/25 MG [Concomitant]
     Indication: PRODUCT USED FOR UNKNOWN INDICATION
     Dosage: UNK
     Route: 065
     Dates: start: 20151204
  10. FURADANTIN RETARD [Concomitant]
     Indication: PRODUCT USED FOR UNKNOWN INDICATION
     Dosage: UNK
     Route: 065
     Dates: start: 20151222
  11. LANTUS 100E/ML SOLOSTAR FS [Concomitant]
     Indication: PRODUCT USED FOR UNKNOWN INDICATION
     Dosage: UNK
     Route: 065
     Dates: start: 20151029
  12. HYLO VISION HD [Concomitant]
     Indication: PRODUCT USED FOR UNKNOWN INDICATION
     Dosage: UNK
     Route: 065
     Dates: start: 20160114
  13. TAMSULOSIN BASICS 0,4 MG HARTKAPSEL, RETARDIERT [Suspect]
     Active Substance: TAMSULOSIN
     Indication: PRODUCT USED FOR UNKNOWN INDICATION
     Dosage: UNK
     Route: 005
     Dates: start: 20151211
  14. CIPRO BASICS 500 MG [Concomitant]
     Indication: PRODUCT USED FOR UNKNOWN INDICATION
     Dosage: UNK
     Route: 065
     Dates: start: 20151210
  15. PRAMIPEXOL HEUMANN [Concomitant]
     Indication: PRODUCT USED FOR UNKNOWN INDICATION
     Dosage: UNK
     Route: 065
     Dates: start: 20151014

REACTIONS (1)
  - Blood glucose increased [Not Recovered/Not Resolved]

NARRATIVE: CASE EVENT DATE: 20160115
